FAERS Safety Report 8379188-6 (Version None)
Quarter: 2012Q1

REPORT INFORMATION
  Report Type: 
  Country: None (occurrence: None)
  Receive Date: 20120323
  Receipt Date: 20110318
  Transmission Date: 20120608
  Serious: Yes (Hospitalization)
  Sender: FDA-Public Use
  Company Number: 163-21880-11032209

PATIENT
  Sex: Female
  Weight: 81.6475 kg

DRUGS (5)
  1. REVLIMID [Suspect]
     Indication: MULTIPLE MYELOMA
     Dosage: 25 MG, 1 IN 1 D, PO, 5 MG, 1 IN 1 D, PO, 25 MG, DAILY FOR 21 DAYS OFF 7 DAYS, PO
     Route: 048
     Dates: start: 20101101
  2. REVLIMID [Suspect]
     Indication: MULTIPLE MYELOMA
     Dosage: 25 MG, 1 IN 1 D, PO, 5 MG, 1 IN 1 D, PO, 25 MG, DAILY FOR 21 DAYS OFF 7 DAYS, PO
     Route: 048
     Dates: start: 20080901
  3. REVLIMID [Suspect]
     Indication: MULTIPLE MYELOMA
     Dosage: 25 MG, 1 IN 1 D, PO, 5 MG, 1 IN 1 D, PO, 25 MG, DAILY FOR 21 DAYS OFF 7 DAYS, PO
     Route: 048
     Dates: start: 20110101
  4. ZOMETA [Concomitant]
  5. ASPIRIN [Concomitant]

REACTIONS (2)
  - ABDOMINAL DISCOMFORT [None]
  - DIARRHOEA [None]
